FAERS Safety Report 9966505 (Version 2)
Quarter: 2014Q1

REPORT INFORMATION
  Report Type: Report from Study
  Country: US (occurrence: US)
  Receive Date: 20140305
  Receipt Date: 20140305
  Transmission Date: 20141002
  Serious: No
  Sender: FDA-Public Use
  Company Number: US-ABBVIE-13P-163-1112546-00

PATIENT
  Age: 54 Year
  Sex: Female

DRUGS (19)
  1. HUMIRA [Suspect]
     Indication: RHEUMATOID ARTHRITIS
     Dates: start: 20130417
  2. METHOTREXATE [Concomitant]
     Indication: RHEUMATOID ARTHRITIS
     Dosage: 8 PILLS ONCE WEEKLY
  3. POTASSIUM CITRATE [Concomitant]
     Indication: PRODUCT USED FOR UNKNOWN INDICATION
  4. ALLOPURINOL [Concomitant]
     Indication: NEPHROLITHIASIS
  5. PREVACID [Concomitant]
     Indication: GASTROOESOPHAGEAL REFLUX DISEASE
  6. HYZAAR [Concomitant]
     Indication: HYPERTENSION
     Dosage: 100-25MG
  7. CRESTOR [Concomitant]
     Indication: BLOOD CHOLESTEROL INCREASED
  8. PREDNISONE [Concomitant]
     Indication: RHEUMATOID ARTHRITIS
  9. FLURBIPROFEN [Concomitant]
     Indication: RHEUMATOID ARTHRITIS
  10. ACTONEL [Concomitant]
     Indication: OSTEOPOROSIS
  11. LEVOTHYROXINE [Concomitant]
     Indication: HYPOTHYROIDISM
  12. IRON [Concomitant]
     Indication: PRODUCT USED FOR UNKNOWN INDICATION
  13. VITAMIN D3 [Concomitant]
     Indication: PRODUCT USED FOR UNKNOWN INDICATION
  14. B-COMPLEX [Concomitant]
     Indication: PRODUCT USED FOR UNKNOWN INDICATION
  15. FOLIC ACID [Concomitant]
     Indication: PRODUCT USED FOR UNKNOWN INDICATION
  16. FIBER [Concomitant]
     Indication: NUTRITIONAL SUPPLEMENTATION
     Dosage: DAILY
  17. AYR [Concomitant]
     Indication: NASAL DRYNESS
     Dosage: NASAL SWAB TWICE A DAY AS NEEDED
  18. RESTASIS [Concomitant]
     Indication: DRY EYE
     Dosage: 2 DROPS EACH EYE
  19. LORTAB [Concomitant]
     Indication: PAIN
     Dosage: 10/500 MG

REACTIONS (5)
  - Incorrect dose administered [Recovered/Resolved]
  - Injection site pain [Recovered/Resolved]
  - Wrong technique in drug usage process [Recovered/Resolved]
  - Device malfunction [Recovered/Resolved]
  - Injection site pain [Recovered/Resolved]
